FAERS Safety Report 20030317 (Version 1)
Quarter: 2021Q4

REPORT INFORMATION
  Report Type: Spontaneous
  Country: US (occurrence: US)
  Receive Date: 20211103
  Receipt Date: 20211103
  Transmission Date: 20220303
  Serious: No
  Sender: FDA-Public Use
  Company Number: US-PFIZER INC-202101434814

PATIENT
  Sex: Female
  Weight: 90.703 kg

DRUGS (1)
  1. INLYTA [Suspect]
     Active Substance: AXITINIB
     Indication: Renal cell carcinoma
     Dosage: UNK

REACTIONS (3)
  - Neoplasm progression [Unknown]
  - Weight increased [Unknown]
  - Palmar-plantar erythrodysaesthesia syndrome [Unknown]
